FAERS Safety Report 6993305-1 (Version None)
Quarter: 2010Q3

REPORT INFORMATION
  Report Type: 
  Country: None (occurrence: None)
  Receive Date: 20100917
  Receipt Date: 20100617
  Transmission Date: 20110219
  Serious: No
  Sender: FDA-Public Use
  Company Number: US-ASTRAZENECA-2010SE26433

PATIENT
  Age: 655 Month
  Sex: Female
  Weight: 167.8 kg

DRUGS (18)
  1. SEROQUEL XR [Suspect]
     Indication: BIPOLAR DISORDER
     Route: 048
     Dates: start: 19980101
  2. SEROQUEL XR [Suspect]
     Indication: BIPOLAR I DISORDER
     Route: 048
     Dates: start: 19980101
  3. SEROQUEL XR [Suspect]
     Route: 048
     Dates: start: 20100301
  4. SEROQUEL XR [Suspect]
     Route: 048
     Dates: start: 20100301
  5. SEROQUEL XR [Suspect]
     Route: 048
  6. SEROQUEL XR [Suspect]
     Route: 048
  7. CELEXA [Concomitant]
  8. XANAX [Concomitant]
  9. AVAPRO [Concomitant]
     Indication: HYPERTENSION
  10. LASIX [Concomitant]
  11. SEROXOLIN [Concomitant]
  12. SINGULAIR [Concomitant]
  13. HUMULIN R [Concomitant]
     Indication: DIABETES MELLITUS
  14. LANTUS [Concomitant]
     Indication: DIABETES MELLITUS
  15. CHLORCON [Concomitant]
     Indication: MINERAL SUPPLEMENTATION
  16. FENTANYL-75 [Concomitant]
     Indication: FIBROMYALGIA
  17. VICODIN [Concomitant]
     Indication: FIBROMYALGIA
  18. BACLOFEN [Concomitant]

REACTIONS (3)
  - PRURITUS [None]
  - RASH [None]
  - WEIGHT INCREASED [None]
